FAERS Safety Report 6389232-3 (Version None)
Quarter: 2009Q4

REPORT INFORMATION
  Report Type: 
  Country: None (occurrence: None)
  Receive Date: 20091006
  Receipt Date: 20090924
  Transmission Date: 20100525
  Serious: Yes (Hospitalization)
  Sender: FDA-Public Use
  Company Number: PHHO2009IN11794

PATIENT
  Sex: Male

DRUGS (1)
  1. RAD 666 RAD+TAB [Suspect]
     Indication: METASTATIC RENAL CELL CARCINOMA
     Dosage: 10MG/DAILY
     Route: 048
     Dates: start: 20090914, end: 20090920

REACTIONS (2)
  - BLOOD UREA INCREASED [None]
  - HYPONATRAEMIA [None]
